FAERS Safety Report 4763372-4 (Version None)
Quarter: 2005Q3

REPORT INFORMATION
  Report Type: 
  Country: None (occurrence: None)
  Receive Date: 20050908
  Receipt Date: 20050830
  Transmission Date: 20060218
  Serious: Yes (Life-Threatening, Hospitalization)
  Sender: FDA-Public Use
  Company Number: 2005GB01670

PATIENT
  Age: 55 Year
  Sex: Male

DRUGS (5)
  1. AMITRIPTYLINE HCL [Suspect]
     Route: 065
  2. ATENOLOL [Suspect]
     Route: 065
  3. ATORVASTATIN CALCIUM [Suspect]
     Indication: BLOOD CHOLESTEROL INCREASED
     Dosage: 7X10MG OVERDOSE
     Route: 048
     Dates: start: 20050813
  4. DIHYDROCODEINE [Suspect]
     Route: 065
  5. DICLOFENAC [Suspect]
     Route: 065

REACTIONS (5)
  - FALL [None]
  - OVERDOSE [None]
  - RENAL FAILURE ACUTE [None]
  - RHABDOMYOLYSIS [None]
  - SYNCOPE [None]
